FAERS Safety Report 23825810 (Version 2)
Quarter: 2024Q3

REPORT INFORMATION
  Report Type: Spontaneous
  Country: US (occurrence: US)
  Receive Date: 20240507
  Receipt Date: 20240930
  Transmission Date: 20241017
  Serious: No
  Sender: MERCK
  Company Number: US-009507513-2405USA001271

PATIENT
  Age: 58 Year
  Sex: Female

DRUGS (1)
  1. KEYTRUDA [Suspect]
     Active Substance: PEMBROLIZUMAB
     Indication: Colorectal cancer
     Dosage: 400MG EVERY 42 DAYS
     Route: 042
     Dates: start: 202110

REACTIONS (2)
  - Product use issue [Unknown]
  - No adverse event [Unknown]
